FAERS Safety Report 5237069-0 (Version None)
Quarter: 2007Q1

REPORT INFORMATION
  Report Type: 
  Country: None (occurrence: None)
  Receive Date: 20070209
  Receipt Date: 20070126
  Transmission Date: 20070707
  Serious: Yes (Death)
  Sender: FDA-Public Use
  Company Number: 2006S1011865

PATIENT
  Age: 60 Year
  Sex: Male

DRUGS (4)
  1. FENTANYL TRANSDERMAL SYSTEM [Suspect]
     Indication: BACK PAIN
     Dosage: ORAL
     Route: 048
     Dates: end: 20060101
  2. SERTRALINE [Suspect]
  3. TRAZODONE HCL [Suspect]
  4. COCAINE [Suspect]

REACTIONS (4)
  - ACCIDENTAL DEATH [None]
  - DRUG ABUSER [None]
  - MULTI-ORGAN FAILURE [None]
  - WRONG TECHNIQUE IN DRUG USAGE PROCESS [None]
